FAERS Safety Report 5082203-9 (Version None)
Quarter: 2006Q3

REPORT INFORMATION
  Report Type: 
  Country: None (occurrence: None)
  Receive Date: 20060814
  Receipt Date: 20060728
  Transmission Date: 20061208
  Serious: Yes (Other)
  Sender: FDA-Public Use
  Company Number: US018010

PATIENT
  Age: 43 Year
  Sex: Female
  Weight: 66.6788 kg

DRUGS (6)
  1. ACTIQ [Suspect]
     Indication: CANCER PAIN
     Dosage: 400 UG Q2HR BUCCAL
     Route: 002
     Dates: start: 20040801
  2. OXYCONTIN [Concomitant]
  3. ARIMIDEX [Concomitant]
  4. XELODA [Concomitant]
  5. OMEPRAZOLE [Concomitant]
  6. EFFEXOR XR [Concomitant]

REACTIONS (5)
  - DENTAL CARIES [None]
  - IMPAIRED HEALING [None]
  - PAIN IN JAW [None]
  - TOOTH DISCOLOURATION [None]
  - TOOTH EXTRACTION [None]
